FAERS Safety Report 9781421 (Version 1)
Quarter: 2013Q4

REPORT INFORMATION
  Report Type: Spontaneous
  Country: US (occurrence: None)
  Receive Date: 20131223
  Receipt Date: 20131223
  Transmission Date: 20140711
  Serious: No
  Sender: FDA-Public Use
  Company Number: None

PATIENT
  Age: 58 Year
  Sex: Male
  Weight: 85 kg

DRUGS (1)
  1. DAPSONE [Suspect]
     Indication: HIV INFECTION
     Route: 048
     Dates: start: 20131008, end: 20131216

REACTIONS (1)
  - Rash [None]
